FAERS Safety Report 11439872 (Version 2)
Quarter: 2015Q3

REPORT INFORMATION
  Report Type: Spontaneous
  Country: JP (occurrence: JP)
  Receive Date: 20150901
  Receipt Date: 20150910
  Transmission Date: 20151125
  Serious: Yes (Life-Threatening)
  Sender: FDA-Public Use
  Company Number: JP-ASTRAZENECA-2014SE75486

PATIENT
  Age: 27569 Day
  Sex: Female
  Weight: 49 kg

DRUGS (4)
  1. NEXIUM [Suspect]
     Active Substance: ESOMEPRAZOLE MAGNESIUM
     Indication: HELICOBACTER GASTRITIS
     Route: 048
     Dates: start: 20140924, end: 20140930
  2. CLARITH [Suspect]
     Active Substance: CLARITHROMYCIN
     Indication: HELICOBACTER GASTRITIS
     Dosage: 200 MG, TWO TIMES A DAY, NON AZ PRODUCT
     Route: 048
     Dates: start: 20140924, end: 20140930
  3. LENDORMIN [Concomitant]
     Active Substance: BROTIZOLAM
     Indication: INSOMNIA
     Route: 048
  4. PASETOCIN [Suspect]
     Active Substance: AMOXICILLIN
     Indication: HELICOBACTER GASTRITIS
     Dosage: 500 MG, THREE TIMES A DAY, NON AZ PRODUCT
     Route: 048
     Dates: start: 20140924, end: 20140930

REACTIONS (2)
  - Stevens-Johnson syndrome [Recovered/Resolved]
  - Acute kidney injury [Recovered/Resolved]

NARRATIVE: CASE EVENT DATE: 20140930
